FAERS Safety Report 7944240-3 (Version None)
Quarter: 2011Q4

REPORT INFORMATION
  Report Type: 
  Country: None (occurrence: None)
  Receive Date: 20111129
  Receipt Date: 20111122
  Transmission Date: 20120403
  Serious: No
  Sender: FDA-Public Use
  Company Number: US-BIOGENIDEC-2010BI024534

PATIENT
  Sex: Female

DRUGS (3)
  1. TYSABRI [Suspect]
     Indication: MULTIPLE SCLEROSIS
     Route: 042
     Dates: start: 20070418, end: 20071016
  2. TYSABRI [Suspect]
     Route: 042
     Dates: start: 20091125
  3. MEDICATION (NOS) [Concomitant]

REACTIONS (13)
  - ARTHRALGIA [None]
  - MUSCULAR WEAKNESS [None]
  - WEIGHT DECREASED [None]
  - UHTHOFF'S PHENOMENON [None]
  - FATIGUE [None]
  - HYPOAESTHESIA [None]
  - URINARY TRACT INFECTION [None]
  - GAIT DISTURBANCE [None]
  - JOINT SWELLING [None]
  - FIBROMYALGIA [None]
  - MEMORY IMPAIRMENT [None]
  - ARTHRITIS [None]
  - MUSCLE SPASMS [None]
